FAERS Safety Report 5518163-3 (Version None)
Quarter: 2007Q4

REPORT INFORMATION
  Report Type: 
  Country: None (occurrence: None)
  Receive Date: 20071113
  Receipt Date: 20071030
  Transmission Date: 20080405
  Serious: Yes (Other)
  Sender: FDA-Public Use
  Company Number: 02100-JPN-07-0661

PATIENT
  Age: 60 Year
  Sex: Male

DRUGS (3)
  1. CILOSTAZOL [Suspect]
     Indication: CEREBRAL INFARCTION
     Dosage: 200 MG/100, ORAL
     Route: 048
     Dates: end: 20070214
  2. CILOSTAZOL [Suspect]
     Indication: CEREBRAL INFARCTION
     Dosage: 200 MG/100, ORAL
     Route: 048
     Dates: start: 20070215, end: 20071021
  3. ALLOPURINOL [Concomitant]

REACTIONS (1)
  - EXTRAMEDULLARY HAEMOPOIESIS [None]
